FAERS Safety Report 13212718 (Version 1)
Quarter: 2017Q1

REPORT INFORMATION
  Report Type: Spontaneous
  Country: US (occurrence: US)
  Receive Date: 20170210
  Receipt Date: 20170210
  Transmission Date: 20170428
  Serious: Yes (Hospitalization, Other)
  Sender: FDA-Public Use
  Company Number: US-PFIZER INC-2017055033

PATIENT
  Sex: Female

DRUGS (3)
  1. SUTENT [Suspect]
     Active Substance: SUNITINIB MALATE
     Dosage: 50/4
     Dates: start: 201506
  2. SUTENT [Suspect]
     Active Substance: SUNITINIB MALATE
     Dosage: 25/4
  3. SUTENT [Suspect]
     Active Substance: SUNITINIB MALATE
     Dosage: 37.5/4

REACTIONS (11)
  - Diarrhoea [Unknown]
  - Dry skin [Recovering/Resolving]
  - Hidradenitis [Recovering/Resolving]
  - Dehydration [Unknown]
  - Nausea [Recovering/Resolving]
  - Thyroid disorder [Recovering/Resolving]
  - Blood creatinine increased [Unknown]
  - Blood pressure increased [Recovering/Resolving]
  - Fatigue [Recovering/Resolving]
  - Alopecia [Recovering/Resolving]
  - Hair colour changes [Unknown]
